FAERS Safety Report 15866585 (Version 2)
Quarter: 2019Q1

REPORT INFORMATION
  Report Type: Report from Study
  Country: None (occurrence: DE)
  Receive Date: 20190125
  Receipt Date: 20190201
  Transmission Date: 20190417
  Serious: Yes (Hospitalization)
  Sender: FDA-Public Use
  Company Number: DE-ABBVIE-19K-062-2638930-00

PATIENT
  Age: 57 Year
  Sex: Female

DRUGS (2)
  1. CORTISONE [Concomitant]
     Active Substance: CORTISONE\HYDROCORTISONE
     Indication: PRODUCT USED FOR UNKNOWN INDICATION
     Dates: start: 201802
  2. HUMIRA [Suspect]
     Active Substance: ADALIMUMAB
     Indication: COLITIS ULCERATIVE
     Route: 058
     Dates: start: 20180703, end: 20180925

REACTIONS (6)
  - Fall [Unknown]
  - Diarrhoea [Recovering/Resolving]
  - Thrombosis [Recovered/Resolved]
  - Drug ineffective [Not Recovered/Not Resolved]
  - Malnutrition [Unknown]
  - Iron deficiency [Unknown]

NARRATIVE: CASE EVENT DATE: 20180703
